FAERS Safety Report 10440666 (Version 1)
Quarter: 2014Q3

REPORT INFORMATION
  Report Type: Spontaneous
  Country: US (occurrence: None)
  Receive Date: 20140905
  Receipt Date: 20140905
  Transmission Date: 20150326
  Serious: No
  Sender: FDA-Public Use
  Company Number: None

PATIENT
  Age: 53 Year
  Sex: Female
  Weight: 68.04 kg

DRUGS (7)
  1. SELENIUM [Concomitant]
     Active Substance: SELENIUM
  2. ESTRADIOL. [Concomitant]
     Active Substance: ESTRADIOL
  3. OMEGA 3 [Concomitant]
     Active Substance: OMEGA-3 FATTY ACIDS
  4. BIOTIN [Concomitant]
     Active Substance: BIOTIN
  5. LATUDA [Suspect]
     Active Substance: LURASIDONE HYDROCHLORIDE
     Indication: BIPOLAR I DISORDER
     Dosage: 1 PILL  IN PM W/FOOD  MOUTH(120 MG)
     Route: 048
     Dates: start: 201312
  6. NEURONTIN [Concomitant]
     Active Substance: GABAPENTIN
  7. WELLBUTRIN (BUPROPIN HCL) XL [Concomitant]

REACTIONS (4)
  - Pruritus [None]
  - Paraesthesia [None]
  - Alopecia [None]
  - Blood prolactin increased [None]

NARRATIVE: CASE EVENT DATE: 20140401
